FAERS Safety Report 6412908-6 (Version None)
Quarter: 2009Q4

REPORT INFORMATION
  Report Type: 
  Country: None (occurrence: None)
  Receive Date: 20091023
  Receipt Date: 20091014
  Transmission Date: 20100525
  Serious: Yes (Other)
  Sender: FDA-Public Use
  Company Number: US-ABBOTT-09P-163-0598785-00

PATIENT
  Sex: Male
  Weight: 93.07 kg

DRUGS (13)
  1. KALETRA [Suspect]
     Indication: HIV INFECTION
     Dosage: 200/50 MG IN ONE DAY
     Dates: start: 20070101
  2. GABAPENTIN [Concomitant]
     Indication: NERVOUS SYSTEM DISORDER
  3. FENOFIBRATE [Concomitant]
     Indication: BLOOD CHOLESTEROL INCREASED
  4. FEXOFENADINE [Concomitant]
     Indication: HYPERSENSITIVITY
  5. COMBIVIR [Concomitant]
     Indication: HIV INFECTION
  6. SULFAMETHOXAZOLE [Concomitant]
     Indication: TOXOPLASMOSIS
  7. PROMETHAZINE [Concomitant]
     Indication: NAUSEA
     Dosage: PRN
  8. FAMOTIDINE [Concomitant]
     Indication: DYSPEPSIA
  9. VENLAFAXINE [Concomitant]
     Indication: DEPRESSION
  10. HYDROCHLOROTHIAZIDE [Concomitant]
     Indication: OEDEMA PERIPHERAL
  11. PRAVASTATIN [Concomitant]
     Indication: BLOOD CHOLESTEROL INCREASED
  12. NEXIUM [Concomitant]
     Indication: DYSPEPSIA
  13. SPORANOX [Concomitant]
     Indication: HISTOPLASMOSIS

REACTIONS (2)
  - INTESTINAL MASS [None]
  - RECTAL HAEMORRHAGE [None]
